FAERS Safety Report 15526300 (Version 1)
Quarter: 2018Q4

REPORT INFORMATION
  Report Type: Spontaneous
  Country: IE (occurrence: IE)
  Receive Date: 20181018
  Receipt Date: 20181018
  Transmission Date: 20190205
  Serious: Yes (Hospitalization, Other)
  Sender: FDA-Public Use
  Company Number: IE-AMGEN-IRLSP2018112175

PATIENT
  Age: 63 Year
  Sex: Female
  Weight: 50 kg

DRUGS (3)
  1. PROLIA [Suspect]
     Active Substance: DENOSUMAB
     Indication: OSTEOPOROSIS
     Dosage: UNK
     Route: 065
     Dates: start: 201609
  2. ROSUVASTATIN. [Concomitant]
     Active Substance: ROSUVASTATIN
     Dosage: 5 MG, QD
  3. ASPIRIN. [Concomitant]
     Active Substance: ASPIRIN
     Dosage: 75 MG, QD

REACTIONS (16)
  - Sinus tachycardia [Unknown]
  - Headache [Unknown]
  - Fatigue [Unknown]
  - Ear discomfort [Unknown]
  - Blood immunoglobulin G decreased [Unknown]
  - Confusional state [Unknown]
  - Infection [Unknown]
  - Memory impairment [Unknown]
  - Dysphonia [Unknown]
  - Feeling abnormal [Unknown]
  - Insomnia [Unknown]
  - Cardiac disorder [Unknown]
  - Blood immunoglobulin A decreased [Unknown]
  - Head discomfort [Unknown]
  - Cortisol increased [Unknown]
  - Asthenia [Unknown]

NARRATIVE: CASE EVENT DATE: 20180730
